FAERS Safety Report 8344293-7 (Version None)
Quarter: 2012Q2

REPORT INFORMATION
  Report Type: 
  Country: None (occurrence: None)
  Receive Date: 20120402
  Receipt Date: 20120227
  Transmission Date: 20120825
  Serious: Yes (Other)
  Sender: FDA-Public Use
  Company Number: 325094USA

PATIENT
  Age: 62 Year
  Sex: Female
  Weight: 61.2356 kg

DRUGS (5)
  1. ALPRAZOLAM [Suspect]
     Indication: PANIC ATTACK
     Dosage: 8 MG (2 MG, 4 IN 1 D)
  2. CODEINE [Suspect]
     Indication: PAIN
  3. VENLAFAXINE [Suspect]
     Indication: DEPRESSION
     Dates: start: 20110101, end: 20110101
  4. ANALGESICS-UNSPECIFIED [Suspect]
     Indication: PAIN
  5. VENLAFAXINE HYDROCHLORIDE [Suspect]
     Indication: DEPRESSION
     Dosage: (150 MG)

REACTIONS (7)
  - ANGER [None]
  - DEPRESSION [None]
  - HEADACHE [None]
  - INHIBITORY DRUG INTERACTION [None]
  - MENTAL DISORDER [None]
  - DRUG ADMINISTRATION ERROR [None]
  - PSYCHOMOTOR HYPERACTIVITY [None]
